FAERS Safety Report 13782495 (Version 2)
Quarter: 2018Q1

REPORT INFORMATION
  Report Type: Report from Study
  Country: BR (occurrence: BR)
  Receive Date: 20170724
  Receipt Date: 20180126
  Transmission Date: 20180508
  Serious: Yes (Other)
  Sender: FDA-Public Use
  Company Number: ALCN2017BR004545

PATIENT
  Sex: Male
  Weight: 72 kg

DRUGS (3)
  1. SYSTANE ULTRA [Suspect]
     Active Substance: POLYETHYLENE GLYCOL 400\PROPYLENE GLYCOL
     Indication: EYE LUBRICATION THERAPY
     Dosage: 3 DRP, QD (IN EACH EYE) (3 YEARS AGO)
     Route: 047
  2. SYSTANE ULTRA [Suspect]
     Active Substance: POLYETHYLENE GLYCOL 400\PROPYLENE GLYCOL
     Dosage: (ONE DROP IN EACH EYE 2-3 TIMES A DAY) IN LEFT EYE ONLY
     Route: 047
     Dates: start: 20170114
  3. GLAUTIMOL [Concomitant]
     Active Substance: TIMOLOL MALEATE
     Indication: INTRAOCULAR PRESSURE INCREASED
     Dosage: BID ((ONE DROP IN THE MORNING AND ANOTHER DROP IN THE EVENING IN LEFT EYE))
     Route: 047
     Dates: start: 201712

REACTIONS (2)
  - Intraocular pressure increased [Unknown]
  - Glaucoma [Recovered/Resolved]
